FAERS Safety Report 5011129-1 (Version None)
Quarter: 2006Q2

REPORT INFORMATION
  Report Type: 
  Country: None (occurrence: None)
  Receive Date: 20060525
  Receipt Date: 20060517
  Transmission Date: 20061013
  Serious: Yes (Other)
  Sender: FDA-Public Use
  Company Number: US-JNJFOC-20060503967

PATIENT
  Age: 58 Year
  Sex: Male
  Weight: 122.47 kg

DRUGS (6)
  1. REMICADE [Suspect]
     Dosage: 3RD INFSION
     Route: 042
  2. REMICADE [Suspect]
     Indication: RHEUMATOID ARTHRITIS
     Route: 042
  3. METHOTREXATE [Concomitant]
     Route: 058
  4. PREDNISONE TAB [Concomitant]
  5. VICODIN [Concomitant]
  6. VICODIN [Concomitant]

REACTIONS (4)
  - MUSCULAR WEAKNESS [None]
  - OEDEMA PERIPHERAL [None]
  - ORTHOPNOEA [None]
  - SHOULDER PAIN [None]
